FAERS Safety Report 14706314 (Version 3)
Quarter: 2018Q2

REPORT INFORMATION
  Report Type: Spontaneous
  Country: JP (occurrence: JP)
  Receive Date: 20180402
  Receipt Date: 20180607
  Transmission Date: 20180711
  Serious: Yes (Death, Life-Threatening, Other)
  Sender: FDA-Public Use
  Company Number: JP-009507513-1801JPN002094J

PATIENT
  Age: 74 Year
  Sex: Male
  Weight: 66 kg

DRUGS (6)
  1. KEYTRUDA [Suspect]
     Active Substance: PEMBROLIZUMAB
     Indication: SQUAMOUS CELL CARCINOMA OF LUNG
     Dosage: 200 MG, Q3W
     Route: 041
     Dates: start: 20171205, end: 20171226
  2. BETAMETHASONE. [Concomitant]
     Active Substance: BETAMETHASONE
     Dosage: 0.5 MG, QD
     Route: 048
     Dates: start: 20180101, end: 20180104
  3. TULOBUTEROL [Concomitant]
     Active Substance: TULOBUTEROL
     Indication: DYSPNOEA
     Dosage: 2 MG, QD
     Route: 062
     Dates: start: 20171130, end: 20180125
  4. MAGMITT [Concomitant]
     Active Substance: MAGNESIUM OXIDE
     Indication: CONSTIPATION
     Dosage: 330 MG, TID
     Route: 048
     Dates: start: 20171222, end: 20180102
  5. BETAMETHASONE. [Concomitant]
     Active Substance: BETAMETHASONE
     Dosage: 1 MG, QD
     Route: 048
     Dates: start: 20171228, end: 20171231
  6. LANSOPRAZOLE OD [Concomitant]
     Active Substance: LANSOPRAZOLE
     Indication: PROPHYLAXIS AGAINST GASTROINTESTINAL ULCER
     Dosage: 15 MG, QD
     Route: 048
     Dates: start: 20171221, end: 20180117

REACTIONS (1)
  - Interstitial lung disease [Fatal]

NARRATIVE: CASE EVENT DATE: 20180113
